FAERS Safety Report 17301221 (Version 1)
Quarter: 2020Q1

REPORT INFORMATION
  Report Type: Spontaneous
  Country: US (occurrence: US)
  Receive Date: 20200104
  Receipt Date: 20200104
  Transmission Date: 20200409
  Serious: No
  Sender: FDA-Public Use
  Company Number: None

PATIENT

DRUGS (1)
  1. NEULASTA [Suspect]
     Active Substance: PEGFILGRASTIM
     Route: 058
     Dates: start: 2020

REACTIONS (2)
  - Incorrect dose administered [None]
  - Wrong technique in device usage process [None]

NARRATIVE: CASE EVENT DATE: 20200104
